FAERS Safety Report 7111472-6 (Version None)
Quarter: 2010Q4

REPORT INFORMATION
  Report Type: 
  Country: None (occurrence: None)
  Receive Date: 20101118
  Receipt Date: 20101111
  Transmission Date: 20110411
  Serious: Yes (Hospitalization)
  Sender: FDA-Public Use
  Company Number: US-US-EMD SERONO, INC.-7027162

PATIENT
  Sex: Male

DRUGS (3)
  1. NOVANTRONE [Suspect]
     Dates: start: 20090301, end: 20100201
  2. AVONEX [Suspect]
     Indication: MULTIPLE SCLEROSIS
     Route: 030
     Dates: start: 20060716, end: 20090508
  3. AVONEX [Suspect]
     Route: 030
     Dates: start: 20100402

REACTIONS (1)
  - RENAL CANCER [None]
